FAERS Safety Report 20426291 (Version 1)
Quarter: 2022Q1

REPORT INFORMATION
  Report Type: Report from Study
  Country: US (occurrence: US)
  Receive Date: 20220204
  Receipt Date: 20220204
  Transmission Date: 20220423
  Serious: No
  Sender: FDA-Public Use
  Company Number: US-EXELIXIS-CABO-21042050

PATIENT
  Age: 63 Year
  Sex: Male

DRUGS (1)
  1. CABOMETYX [Suspect]
     Active Substance: CABOZANTINIB S-MALATE
     Indication: Renal cancer
     Dosage: 40 MG, ONCE DAILY MONDAY TO FRIDAY (DO NOT TAKE SATURDAY AND SUNDAY)
     Route: 048
     Dates: start: 201912

REACTIONS (4)
  - Blister [Unknown]
  - Dry skin [Unknown]
  - Dry mouth [Unknown]
  - Inappropriate schedule of product administration [Unknown]

NARRATIVE: CASE EVENT DATE: 20191201
